FAERS Safety Report 5900608-8 (Version None)
Quarter: 2008Q3

REPORT INFORMATION
  Report Type: 
  Country: None (occurrence: None)
  Receive Date: 20080926
  Receipt Date: 20080916
  Transmission Date: 20090109
  Serious: Yes (Hospitalization)
  Sender: FDA-Public Use
  Company Number: CH-PFIZER INC-2008078317

PATIENT
  Sex: Female
  Weight: 60 kg

DRUGS (4)
  1. LYRICA [Suspect]
     Indication: NEURALGIA
     Route: 048
     Dates: start: 20080421, end: 20080428
  2. BACLOFEN [Suspect]
     Indication: DYSTONIA
     Dosage: DAILY DOSE:70MG
     Route: 048
     Dates: start: 20070101
  3. AKINETON [Suspect]
     Indication: DYSTONIA
     Dosage: DAILY DOSE:14MG
     Route: 048
     Dates: start: 20070101
  4. ASPIRIN [Concomitant]
     Indication: CEREBROVASCULAR ACCIDENT
     Dosage: DAILY DOSE:100MG
     Route: 048
     Dates: start: 20050101

REACTIONS (1)
  - STATUS EPILEPTICUS [None]
